FAERS Safety Report 6902911-1 (Version None)
Quarter: 2010Q3

REPORT INFORMATION
  Report Type: 
  Country: None (occurrence: None)
  Receive Date: 20100803
  Receipt Date: 20080702
  Transmission Date: 20110219
  Serious: No
  Sender: FDA-Public Use
  Company Number: US-PFIZER INC-2008040653

PATIENT
  Sex: Female

DRUGS (1)
  1. LYRICA [Suspect]
     Indication: FIBROMYALGIA
     Dates: start: 20080422

REACTIONS (7)
  - DRUG INTOLERANCE [None]
  - DRY MOUTH [None]
  - ENERGY INCREASED [None]
  - LETHARGY [None]
  - MENTAL IMPAIRMENT [None]
  - ORAL DISCOMFORT [None]
  - SPEECH DISORDER [None]
